FAERS Safety Report 7818744-8 (Version None)
Quarter: 2011Q4

REPORT INFORMATION
  Report Type: 
  Country: None (occurrence: None)
  Receive Date: 20111018
  Receipt Date: 20111006
  Transmission Date: 20120403
  Serious: No
  Sender: FDA-Public Use
  Company Number: US-BIOGENIDEC-2011BI038398

PATIENT
  Sex: Female

DRUGS (2)
  1. TYSABRI [Suspect]
     Indication: MULTIPLE SCLEROSIS
     Route: 042
     Dates: start: 20100219
  2. TYSABRI [Suspect]
     Route: 042
     Dates: start: 20070711, end: 20080926

REACTIONS (3)
  - COORDINATION ABNORMAL [None]
  - NAUSEA [None]
  - VOMITING [None]
